FAERS Safety Report 24200587 (Version 1)
Quarter: 2024Q3

REPORT INFORMATION
  Report Type: Spontaneous
  Country: US (occurrence: US)
  Receive Date: 20240812
  Receipt Date: 20240812
  Transmission Date: 20241016
  Serious: No
  Sender: AYTU BIOSCIENCE
  Company Number: US-AYTU BIOPHARMA, INC.-2024AYT000044

PATIENT

DRUGS (1)
  1. COTEMPLA XR-ODT [Suspect]
     Active Substance: METHYLPHENIDATE
     Indication: Attention deficit hyperactivity disorder
     Dosage: 17.3 MILLIGRAM, QD
     Route: 048
     Dates: start: 202312

REACTIONS (4)
  - Disturbance in attention [Unknown]
  - Abnormal behaviour [Unknown]
  - Drug ineffective [Unknown]
  - Product quality issue [Unknown]

NARRATIVE: CASE EVENT DATE: 20240502
